FAERS Safety Report 6937540-7 (Version None)
Quarter: 2010Q3

REPORT INFORMATION
  Report Type: 
  Country: None (occurrence: None)
  Receive Date: 20100823
  Receipt Date: 20100823
  Transmission Date: 20110219
  Serious: Yes (Hospitalization)
  Sender: FDA-Public Use
  Company Number: None

PATIENT
  Age: 29 Year
  Sex: Female
  Weight: 68.4932 kg

DRUGS (2)
  1. ORTHO TRI-CYCLEN LO [Suspect]
     Indication: DYSMENORRHOEA
     Dosage: 1 PILL A DAY PO
     Route: 048
     Dates: start: 20090915, end: 20100115
  2. ORTHO TRI-CYCLEN LO [Suspect]
     Indication: MENSTRUATION IRREGULAR
     Dosage: 1 PILL A DAY PO
     Route: 048
     Dates: start: 20090915, end: 20100115

REACTIONS (14)
  - ABASIA [None]
  - CONTACT LENS INTOLERANCE [None]
  - DEHYDRATION [None]
  - DRY EYE [None]
  - DYSMENORRHOEA [None]
  - ECONOMIC PROBLEM [None]
  - EMOTIONAL DISORDER [None]
  - ERYTHEMA NODOSUM [None]
  - JOINT SWELLING [None]
  - OEDEMA PERIPHERAL [None]
  - PAIN [None]
  - PRODUCT SUBSTITUTION ISSUE [None]
  - STRESS [None]
  - WEIGHT INCREASED [None]
